FAERS Safety Report 4625702-3 (Version None)
Quarter: 2005Q1

REPORT INFORMATION
  Report Type: 
  Country: None (occurrence: None)
  Receive Date: 20050330
  Receipt Date: 20050318
  Transmission Date: 20050727
  Serious: Yes (Hospitalization)
  Sender: FDA-Public Use
  Company Number: 2005037587

PATIENT
  Age: 41 Year
  Sex: Female
  Weight: 38 kg

DRUGS (1)
  1. VFEND [Suspect]
     Indication: OESOPHAGEAL CANDIDIASIS
     Dosage: 200 MG (BID), INTRAVENOUS
     Route: 042
     Dates: start: 20041217, end: 20041231

REACTIONS (1)
  - CYTOLYTIC HEPATITIS [None]
